FAERS Safety Report 8520340-4 (Version None)
Quarter: 2012Q3

REPORT INFORMATION
  Report Type: 
  Country: None (occurrence: None)
  Receive Date: 20120719
  Receipt Date: 20120714
  Transmission Date: 20120928
  Serious: Yes (Hospitalization, Other)
  Sender: FDA-Public Use
  Company Number: GR-US-EMD SERONO, INC.-7147779

PATIENT
  Sex: Male

DRUGS (2)
  1. ANXIOLYTIC DRUGS [Concomitant]
     Indication: PRODUCT USED FOR UNKNOWN INDICATION
  2. REBIF [Suspect]
     Indication: MULTIPLE SCLEROSIS
     Route: 058
     Dates: start: 20100401

REACTIONS (6)
  - HAEMORRHAGE [None]
  - DRUG DOSE OMISSION [None]
  - HYPOAESTHESIA [None]
  - TIBIA FRACTURE [None]
  - ROAD TRAFFIC ACCIDENT [None]
  - HYPOKINESIA [None]
